FAERS Safety Report 4384175-9 (Version None)
Quarter: 2004Q2

REPORT INFORMATION
  Report Type: 
  Country: None (occurrence: None)
  Receive Date: 20040621
  Receipt Date: 20040608
  Transmission Date: 20050107
  Serious: Yes (Hospitalization, Other)
  Sender: FDA-Public Use
  Company Number: HQWYE400909JUN04

PATIENT
  Age: 38 Year
  Sex: Female

DRUGS (1)
  1. PREMARIN [Suspect]
     Indication: OESTROGEN REPLACEMENT THERAPY
     Dosage: 0.625 MG DAILY, ORAL
     Route: 048
     Dates: start: 20020726, end: 20030727

REACTIONS (9)
  - DYSPNOEA [None]
  - FAECAL INCONTINENCE [None]
  - FLUID RETENTION [None]
  - LUNG DISORDER [None]
  - MAMMOGRAM ABNORMAL [None]
  - SINUS ARRHYTHMIA [None]
  - THROMBOSIS [None]
  - URINARY INCONTINENCE [None]
  - VEIN DISORDER [None]
